FAERS Safety Report 4804484-6 (Version None)
Quarter: 2005Q4

REPORT INFORMATION
  Report Type: 
  Country: None (occurrence: None)
  Receive Date: 20051017
  Receipt Date: 20051003
  Transmission Date: 20060501
  Serious: Yes (Other)
  Sender: FDA-Public Use
  Company Number: 2005137515

PATIENT
  Age: 78 Year
  Sex: Male

DRUGS (4)
  1. GABAPENTIN [Suspect]
     Indication: PAIN
     Dosage: 900 MG (300 MG, 3 IN 1 D), ORAL
     Route: 048
     Dates: start: 20050101
  2. GLICLAZIDE (GLICLAZIDE) [Concomitant]
  3. METFORMIN (METFORMIN) [Concomitant]
  4. INDAPAMIDE [Concomitant]

REACTIONS (1)
  - PULMONARY FIBROSIS [None]
